FAERS Safety Report 9100875 (Version 1)
Quarter: 2013Q1

REPORT INFORMATION
  Report Type: Spontaneous
  Country: US (occurrence: None)
  Receive Date: 20130220
  Receipt Date: 20130220
  Transmission Date: 20140127
  Serious: Yes (Death)
  Sender: FDA-Public Use
  Company Number: None

PATIENT
  Age: 56 Year
  Sex: Female
  Weight: 61.24 kg

DRUGS (2)
  1. TEMAZEPAM [Suspect]
     Indication: INSOMNIA
     Dosage: 1 PILL AT BEDTIME PO
     Route: 048
     Dates: start: 20100618, end: 20100701
  2. TRAZADONE [Suspect]
     Indication: INSOMNIA
     Dosage: 1 PILL AT BEDTIME PO
     Route: 048
     Dates: start: 20100618, end: 20100730

REACTIONS (5)
  - Completed suicide [None]
  - Abnormal behaviour [None]
  - Anxiety [None]
  - Negative thoughts [None]
  - Asphyxia [None]
